FAERS Safety Report 21962379 (Version 2)
Quarter: 2024Q1

REPORT INFORMATION
  Report Type: Report from Study
  Country: US (occurrence: US)
  Receive Date: 20230207
  Receipt Date: 20240207
  Transmission Date: 20240410
  Serious: No
  Sender: FDA-Public Use
  Company Number: US-ORG100014127-2022000469

PATIENT
  Age: 67 Year
  Sex: Female

DRUGS (12)
  1. LYSODREN [Suspect]
     Active Substance: MITOTANE
     Indication: Adrenal gland cancer
     Dosage: 03 TABLETS THREE TIMES DAILY
     Route: 048
     Dates: start: 20220408
  2. LYSODREN [Suspect]
     Active Substance: MITOTANE
     Indication: Adrenal gland cancer
     Dosage: 14-18 TABLETS A DAY
     Route: 048
     Dates: start: 20220408
  3. OZEMPIC INJ 2/1.5ML [Concomitant]
     Indication: Product used for unknown indication
     Dosage: UNK
     Route: 065
  4. AMLODIPINE TAB 5MG [Concomitant]
     Indication: Product used for unknown indication
     Dosage: UNK
     Route: 065
  5. CELECOXIB CAP 200MG [Concomitant]
     Indication: Product used for unknown indication
     Dosage: UNK
     Route: 065
  6. MITIGARE CAP 0.6MG [Concomitant]
     Indication: Product used for unknown indication
     Dosage: UNK
     Route: 065
  7. TIZANIDINE HYDROCHLORIDE [Concomitant]
     Active Substance: TIZANIDINE HYDROCHLORIDE
     Indication: Product used for unknown indication
     Dosage: UNK
     Route: 065
  8. DEXAMETHASON TAB 0.75MG [Concomitant]
     Indication: Product used for unknown indication
  9. DEXAMETHASON TAB 1 MG [Concomitant]
     Indication: Product used for unknown indication
  10. ESCITALOPRAM [Concomitant]
     Active Substance: ESCITALOPRAM OXALATE
     Indication: Product used for unknown indication
  11. VIT C IMMUNE WAF 500MG [Concomitant]
     Indication: Product used for unknown indication
  12. VIT D3 HP CAP 2000UNIT [Concomitant]
     Indication: Product used for unknown indication

REACTIONS (8)
  - Vaginal discharge [Recovered/Resolved]
  - Oropharyngeal pain [Recovering/Resolving]
  - Anxiety [Not Recovered/Not Resolved]
  - Paranasal sinus discomfort [Not Recovered/Not Resolved]
  - Ear pain [Not Recovered/Not Resolved]
  - Vomiting [Unknown]
  - Fatigue [Not Recovered/Not Resolved]
  - Headache [Recovering/Resolving]

NARRATIVE: CASE EVENT DATE: 20220101
